FAERS Safety Report 5721235-1 (Version None)
Quarter: 2008Q2

REPORT INFORMATION
  Report Type: 
  Country: None (occurrence: None)
  Receive Date: 20080429
  Receipt Date: 20080417
  Transmission Date: 20081010
  Serious: Yes (Other)
  Sender: FDA-Public Use
  Company Number: CA-BAYER-200614927GDS

PATIENT
  Age: 74 Year
  Sex: Male

DRUGS (1)
  1. ASPIRIN [Suspect]
     Indication: ARTHRALGIA
     Route: 048

REACTIONS (3)
  - GASTROINTESTINAL ULCER [None]
  - RECTAL HAEMORRHAGE [None]
  - STOMACH DISCOMFORT [None]
